FAERS Safety Report 25777689 (Version 2)
Quarter: 2025Q4

REPORT INFORMATION
  Report Type: Spontaneous
  Country: EU (occurrence: EU)
  Receive Date: 20250909
  Receipt Date: 20251127
  Transmission Date: 20260118
  Serious: Yes (Other)
  Sender: AUROBINDO
  Company Number: EU-SUN PHARMACEUTICAL INDUSTRIES LTD-2025R1-523956

PATIENT
  Age: 57 Year
  Sex: Female

DRUGS (1)
  1. LIDOCAINE [Suspect]
     Active Substance: LIDOCAINE
     Indication: Anaesthesia
     Dosage: UNK
     Route: 065

REACTIONS (5)
  - Type I hypersensitivity [Unknown]
  - Anaphylactic shock [Unknown]
  - Tachycardia [Unknown]
  - Hyperhidrosis [Unknown]
  - Abdominal pain [Unknown]
